FAERS Safety Report 6145482-2 (Version None)
Quarter: 2009Q2

REPORT INFORMATION
  Report Type: 
  Country: None (occurrence: None)
  Receive Date: 20090406
  Receipt Date: 20090331
  Transmission Date: 20091009
  Serious: Yes (Other)
  Sender: FDA-Public Use
  Company Number: US-PFIZER INC-2008159018

PATIENT
  Sex: Female
  Weight: 76.203 kg

DRUGS (1)
  1. CELEBREX [Suspect]
     Indication: ARTHRITIS
     Dosage: 200 MG, 2X/DAY
     Dates: start: 20081202, end: 20081217

REACTIONS (15)
  - ACCIDENTAL EXPOSURE [None]
  - ARTHRALGIA [None]
  - BURNING SENSATION [None]
  - CHILLS [None]
  - EYE OEDEMA [None]
  - FEELING HOT [None]
  - GENERALISED ERYTHEMA [None]
  - INSOMNIA [None]
  - PAIN IN EXTREMITY [None]
  - PALPITATIONS [None]
  - PRURITUS [None]
  - PYREXIA [None]
  - RASH [None]
  - SKIN BURNING SENSATION [None]
  - SWELLING [None]
